FAERS Safety Report 18101716 (Version 3)
Quarter: 2020Q4

REPORT INFORMATION
  Report Type: Spontaneous
  Country: US (occurrence: US)
  Receive Date: 20200802
  Receipt Date: 20201004
  Transmission Date: 20210113
  Serious: No
  Sender: FDA-Public Use
  Company Number: US-ASTRAZENECA-2020SE95033

PATIENT
  Sex: Female

DRUGS (5)
  1. SYMLIN [Suspect]
     Active Substance: PRAMLINTIDE ACETATE
     Indication: TYPE 2 DIABETES MELLITUS
     Route: 058
     Dates: start: 2008
  2. LANTUS [Concomitant]
     Active Substance: INSULIN GLARGINE
  3. TRICEBA [Concomitant]
  4. HUMALOG [Concomitant]
     Active Substance: INSULIN LISPRO
     Dates: start: 2009
  5. APEDRA [Concomitant]

REACTIONS (9)
  - Device malfunction [Unknown]
  - Wrong technique in device usage process [Unknown]
  - Device issue [Unknown]
  - Hypoglycaemia [Not Recovered/Not Resolved]
  - Product contamination with body fluid [Unknown]
  - Pain in extremity [Unknown]
  - Headache [Unknown]
  - Hyperglycaemia [Unknown]
  - Incorrect dose administered by device [Unknown]
